FAERS Safety Report 4579897-0 (Version None)
Quarter: 2005Q1

REPORT INFORMATION
  Report Type: 
  Country: None (occurrence: None)
  Receive Date: 20050210
  Receipt Date: 20050129
  Transmission Date: 20050727
  Serious: Yes (Other)
  Sender: FDA-Public Use
  Company Number: 2005023450

PATIENT
  Age: 18 Year
  Sex: Female
  Weight: 74.8435 kg

DRUGS (2)
  1. DEPO-PROVERA [Suspect]
     Indication: CONTRACEPTION
     Dosage: SEE IMAGE
     Route: 030
     Dates: start: 20040430, end: 20040430
  2. DEPO-PROVERA [Suspect]
     Indication: CONTRACEPTION
     Dosage: SEE IMAGE
     Route: 030
     Dates: start: 20041012, end: 20041012

REACTIONS (6)
  - AMENORRHOEA [None]
  - DEPRESSION [None]
  - LETHARGY [None]
  - METRORRHAGIA [None]
  - PANIC ATTACK [None]
  - WEIGHT INCREASED [None]
